FAERS Safety Report 9476860 (Version 2)
Quarter: 2013Q3

REPORT INFORMATION
  Report Type: Spontaneous
  Country: JP (occurrence: JP)
  Receive Date: 20130826
  Receipt Date: 20130828
  Transmission Date: 20140515
  Serious: Yes (Other)
  Sender: FDA-Public Use
  Company Number: JP-EISAI INC-E2090-02818-SPO-JP

PATIENT
  Age: 59 Year
  Sex: Female

DRUGS (4)
  1. EXCEGRAN [Suspect]
     Indication: CONVULSION PROPHYLAXIS
     Dosage: 200 MG DAILY
     Route: 048
  2. CAMACULIN [Suspect]
     Indication: PRODUCT USED FOR UNKNOWN INDICATION
     Dosage: UNKNOWN
     Route: 048
  3. METHYCOBAL [Suspect]
     Indication: PRODUCT USED FOR UNKNOWN INDICATION
     Dosage: 500 MICROGRAMS DAILY
     Route: 065
  4. ETIZOLAM [Concomitant]

REACTIONS (2)
  - Alopecia [Not Recovered/Not Resolved]
  - Eczema [Not Recovered/Not Resolved]
